FAERS Safety Report 7328691-6 (Version None)
Quarter: 2011Q1

REPORT INFORMATION
  Report Type: 
  Country: None (occurrence: None)
  Receive Date: 20110225
  Receipt Date: 20110225
  Transmission Date: 20110831
  Serious: Yes (Other)
  Sender: FDA-Public Use
  Company Number: None

PATIENT
  Sex: Female

DRUGS (2)
  1. DEPAKOTE [Suspect]
     Dosage: 250MG QAM PO
     Route: 048
  2. DEPAKOTE [Suspect]
     Dosage: 500MG QHS PO
     Route: 048

REACTIONS (2)
  - THROAT TIGHTNESS [None]
  - DROOLING [None]
